FAERS Safety Report 24737124 (Version 2)
Quarter: 2025Q1

REPORT INFORMATION
  Report Type: Report from Study
  Country: US (occurrence: US)
  Receive Date: 20241216
  Receipt Date: 20250107
  Transmission Date: 20250408
  Serious: No
  Sender: ASTELLAS
  Company Number: US-ASTELLAS-2024-AER-013861

PATIENT

DRUGS (2)
  1. AVACINCAPTAD PEGOL [Suspect]
     Active Substance: AVACINCAPTAD PEGOL
     Indication: Dry age-related macular degeneration
     Dosage: 2MG (0.1ML OF 20MG/ML) MONTHLY
     Route: 031
  2. AVACINCAPTAD PEGOL [Suspect]
     Active Substance: AVACINCAPTAD PEGOL

REACTIONS (3)
  - Needle issue [Unknown]
  - Syringe issue [Unknown]
  - Intercepted product administration error [Unknown]

NARRATIVE: CASE EVENT DATE: 20241017
